FAERS Safety Report 14780234 (Version 3)
Quarter: 2019Q2

REPORT INFORMATION
  Report Type: Spontaneous
  Country: US (occurrence: US)
  Receive Date: 20180419
  Receipt Date: 20190410
  Transmission Date: 20190711
  Serious: Yes (Hospitalization, Disabling, Other)
  Sender: FDA-Public Use
  Company Number: US-ASTRAZENECA-2018SE47160

PATIENT
  Age: 62 Year
  Sex: Male
  Weight: 76.2 kg

DRUGS (28)
  1. TAMSULOSIN [Concomitant]
     Active Substance: TAMSULOSIN
     Dosage: 0.4MG UNKNOWN
     Route: 048
  2. AMLODIPINE [Concomitant]
     Active Substance: AMLODIPINE BESYLATE
     Route: 048
  3. PANTOPRAZOLE [Suspect]
     Active Substance: PANTOPRAZOLE
     Route: 065
     Dates: start: 20120913
  4. IMDUR [Concomitant]
     Active Substance: ISOSORBIDE MONONITRATE
     Route: 048
  5. TACROLIMUS. [Concomitant]
     Active Substance: TACROLIMUS
  6. NEXIUM [Suspect]
     Active Substance: ESOMEPRAZOLE MAGNESIUM
     Route: 048
     Dates: start: 2001, end: 2017
  7. NEXIUM [Suspect]
     Active Substance: ESOMEPRAZOLE MAGNESIUM
     Route: 048
     Dates: start: 20171023
  8. NITROSTAT [Concomitant]
     Active Substance: NITROGLYCERIN
  9. NEXIUM [Suspect]
     Active Substance: ESOMEPRAZOLE MAGNESIUM
     Route: 048
     Dates: start: 2007, end: 2017
  10. LISINOPRIL. [Concomitant]
     Active Substance: LISINOPRIL
  11. JANUVIA [Concomitant]
     Active Substance: SITAGLIPTIN PHOSPHATE
  12. LASIX [Concomitant]
     Active Substance: FUROSEMIDE
  13. LOPRESSOR [Concomitant]
     Active Substance: METOPROLOL TARTRATE
  14. METOPROLOL. [Concomitant]
     Active Substance: METOPROLOL
  15. PREDNISONE. [Concomitant]
     Active Substance: PREDNISONE
  16. AMOXICILLIN. [Concomitant]
     Active Substance: AMOXICILLIN
  17. AZITHROMYCIN ANHYDROUS. [Concomitant]
     Active Substance: AZITHROMYCIN ANHYDROUS
  18. FERATAB [Concomitant]
  19. ZOCOR [Concomitant]
     Active Substance: SIMVASTATIN
  20. PREDNISONE. [Concomitant]
     Active Substance: PREDNISONE
  21. ISOSORBIDE. [Concomitant]
     Active Substance: ISOSORBIDE
     Route: 048
  22. CLOPIDOGREL [Concomitant]
     Active Substance: CLOPIDOGREL BISULFATE
  23. HUMALOG [Concomitant]
     Active Substance: INSULIN LISPRO
  24. HYDRALAZINE [Concomitant]
     Active Substance: HYDRALAZINE HYDROCHLORIDE
  25. AMBIEN [Concomitant]
     Active Substance: ZOLPIDEM TARTRATE
  26. METOPROLOL. [Concomitant]
     Active Substance: METOPROLOL
  27. HYDRALAZINE [Concomitant]
     Active Substance: HYDRALAZINE HYDROCHLORIDE
  28. EPOGEN [Concomitant]
     Active Substance: ERYTHROPOIETIN

REACTIONS (4)
  - End stage renal disease [Not Recovered/Not Resolved]
  - Chronic kidney disease [Not Recovered/Not Resolved]
  - Nephrogenic anaemia [Unknown]
  - Renal failure [Unknown]

NARRATIVE: CASE EVENT DATE: 2012
